FAERS Safety Report 18468993 (Version 1)
Quarter: 2020Q4

REPORT INFORMATION
  Report Type: Spontaneous
  Country: US (occurrence: US)
  Receive Date: 20201105
  Receipt Date: 20201105
  Transmission Date: 20210114
  Serious: No
  Sender: FDA-Public Use
  Company Number: US-PFIZER INC-2020427441

PATIENT
  Sex: Female

DRUGS (1)
  1. ALPRAZOLAM. [Suspect]
     Active Substance: ALPRAZOLAM
     Indication: STRESS
     Dosage: 1 MG, 1X/DAY
     Route: 048
     Dates: start: 2000

REACTIONS (6)
  - Off label use [Unknown]
  - Poor quality product administered [Not Recovered/Not Resolved]
  - Nervousness [Unknown]
  - Drug ineffective for unapproved indication [Unknown]
  - Obsessive-compulsive disorder [Unknown]
  - Suspected product quality issue [Not Recovered/Not Resolved]

NARRATIVE: CASE EVENT DATE: 202010
